FAERS Safety Report 8581017 (Version 4)
Quarter: 2013Q2

REPORT INFORMATION
  Report Type: Spontaneous
  Country: US (occurrence: US)
  Receive Date: 20120525
  Receipt Date: 20130415
  Transmission Date: 20140414
  Serious: Yes (Hospitalization, Other)
  Sender: FDA-Public Use
  Company Number: US-ELI_LILLY_AND_COMPANY-US201205002493

PATIENT
  Age: 78 Year
  Sex: Female
  Weight: 36.74 kg

DRUGS (4)
  1. FORTEO [Suspect]
     Indication: OSTEOPOROSIS
     Dosage: 20 UG, QD
     Dates: start: 20120501
  2. FORTEO [Suspect]
     Dosage: 20 UG, QD
  3. FORTEO [Suspect]
     Dosage: 20 UG, QD
  4. TYLENOL /00020001/ [Concomitant]
     Indication: PAIN

REACTIONS (25)
  - Pancreatic disorder [Unknown]
  - Pancreatic carcinoma [Unknown]
  - Chest discomfort [Unknown]
  - Dyspnoea [Unknown]
  - Nephrolithiasis [Unknown]
  - Throat tightness [Unknown]
  - Heart rate increased [Unknown]
  - Back pain [Unknown]
  - Malaise [Unknown]
  - Laboratory test abnormal [Unknown]
  - Gastrooesophageal reflux disease [Unknown]
  - Oedema [Unknown]
  - Wound infection [Unknown]
  - Dizziness [Recovered/Resolved]
  - Headache [Recovered/Resolved]
  - Pain [Unknown]
  - Dyspnoea [Unknown]
  - Drug dose omission [Not Recovered/Not Resolved]
  - Weight decreased [Unknown]
  - Inappropriate schedule of drug administration [Unknown]
  - Injection site erythema [Unknown]
  - Bone pain [Unknown]
  - Injection site rash [Unknown]
  - Bladder disorder [Unknown]
  - Abdominal pain lower [Unknown]
